FAERS Safety Report 20553240 (Version 2)
Quarter: 2022Q1

REPORT INFORMATION
  Report Type: Spontaneous
  Country: US (occurrence: None)
  Receive Date: 20220304
  Receipt Date: 20220311
  Transmission Date: 20220423
  Serious: Yes (Other)
  Sender: FDA-Public Use
  Company Number: 2022A097221

PATIENT

DRUGS (1)
  1. BREZTRI [Suspect]
     Active Substance: BUDESONIDE\FORMOTEROL\GLYCOPYRROLATE
     Dosage: 160/7.2/5.0 MCG UNKNOWN
     Route: 055

REACTIONS (3)
  - Breast cancer [Unknown]
  - Device malfunction [Unknown]
  - Device delivery system issue [Unknown]
